FAERS Safety Report 23353820 (Version 1)
Quarter: 2024Q1

REPORT INFORMATION
  Report Type: Spontaneous
  Country: US (occurrence: US)
  Receive Date: 20240101
  Receipt Date: 20240101
  Transmission Date: 20240410
  Serious: No
  Sender: FDA-Public Use
  Company Number: US-SA-2023SA365225

PATIENT
  Age: 44 Year
  Sex: Female

DRUGS (12)
  1. DUPIXENT [Suspect]
     Active Substance: DUPILUMAB
     Indication: Dermatitis atopic
     Dosage: 1 DF, QOW
     Route: 058
     Dates: start: 20230830
  2. HYDROCORTISONE [Suspect]
     Active Substance: HYDROCORTISONE
     Dosage: UNK
  3. TACROLIMUS [Suspect]
     Active Substance: TACROLIMUS
     Dosage: UNK
  4. VITAMINS [Concomitant]
     Active Substance: VITAMINS
  5. WELLBUTRIN [Concomitant]
     Active Substance: BUPROPION HYDROCHLORIDE
  6. SINGULAIR [Concomitant]
     Active Substance: MONTELUKAST SODIUM
  7. ALBUTEROL [Concomitant]
     Active Substance: ALBUTEROL
  8. FLUTICASONE [Concomitant]
     Active Substance: FLUTICASONE
  9. MELATONIN [Concomitant]
     Active Substance: MELATONIN
  10. IBUPROFEN [Concomitant]
     Active Substance: IBUPROFEN
  11. ZYRTEC [Concomitant]
     Active Substance: CETIRIZINE HYDROCHLORIDE
  12. RINVOQ [Concomitant]
     Active Substance: UPADACITINIB

REACTIONS (6)
  - Eczema [Unknown]
  - Inappropriate schedule of product administration [Unknown]
  - Eye swelling [Unknown]
  - Eye pruritus [Unknown]
  - Eye inflammation [Unknown]
  - Skin fissures [Unknown]

NARRATIVE: CASE EVENT DATE: 20231218
